FAERS Safety Report 5919003-0 (Version None)
Quarter: 2008Q4

REPORT INFORMATION
  Report Type: 
  Country: None (occurrence: None)
  Receive Date: 20081014
  Receipt Date: 20081014
  Transmission Date: 20090506
  Serious: Yes (Life-Threatening, Hospitalization)
  Sender: FDA-Public Use
  Company Number: None

PATIENT
  Age: 46 Year
  Sex: Female
  Weight: 79.3795 kg

DRUGS (1)
  1. CHANTIX [Suspect]
     Indication: SMOKING CESSATION THERAPY
     Dosage: 1 PILL PER DAY PO
     Route: 048
     Dates: start: 20080104, end: 20080229

REACTIONS (8)
  - AGGRESSION [None]
  - ALTERED STATE OF CONSCIOUSNESS [None]
  - AMNESIA [None]
  - ANOREXIA [None]
  - ANXIETY [None]
  - INCORRECT DOSE ADMINISTERED [None]
  - MOOD ALTERED [None]
  - SLEEP DISORDER [None]
